FAERS Safety Report 8535920-X (Version None)
Quarter: 2012Q3

REPORT INFORMATION
  Report Type: 
  Country: None (occurrence: None)
  Receive Date: 20120725
  Receipt Date: 20120720
  Transmission Date: 20120928
  Serious: Yes (Other)
  Sender: FDA-Public Use
  Company Number: PHFR2012GB003352

PATIENT
  Sex: Male

DRUGS (1)
  1. CLOZARIL [Suspect]
     Indication: SCHIZOPHRENIA, PARANOID TYPE
     Dosage: 350 MG, DAILY
     Route: 048
     Dates: start: 20001215

REACTIONS (3)
  - ANXIETY [None]
  - ACROPHOBIA [None]
  - VERTIGO [None]
